FAERS Safety Report 6377547-4 (Version None)
Quarter: 2009Q3

REPORT INFORMATION
  Report Type: 
  Country: None (occurrence: None)
  Receive Date: 20090925
  Receipt Date: 20090917
  Transmission Date: 20100115
  Serious: Yes (Death)
  Sender: FDA-Public Use
  Company Number: KW-MERCK-0909USA02889

PATIENT
  Age: 52 Year
  Sex: Male

DRUGS (4)
  1. STROMECTOL [Suspect]
     Indication: INFECTION IN AN IMMUNOCOMPROMISED HOST
     Route: 048
  2. PROGRAF [Concomitant]
     Route: 065
  3. CELLCEPT [Concomitant]
     Route: 065
  4. PREDNISOLONE [Concomitant]
     Route: 065

REACTIONS (1)
  - TREATMENT FAILURE [None]
